FAERS Safety Report 8604511-4 (Version None)
Quarter: 2012Q3

REPORT INFORMATION
  Report Type: 
  Country: None (occurrence: None)
  Receive Date: 20120820
  Receipt Date: 20120808
  Transmission Date: 20120928
  Serious: Yes (Other)
  Sender: FDA-Public Use
  Company Number: CA-JNJFOC-20120804977

PATIENT
  Sex: Female
  Weight: 45.36 kg

DRUGS (2)
  1. ORTHO EVRA [Suspect]
     Indication: MUSCLE SPASMS
     Dosage: FOR 3 MONTHS THEN OFF 1 WEEK
     Route: 062
     Dates: start: 20120101
  2. ORTHO EVRA [Suspect]
     Indication: CONTRACEPTION
     Dosage: FOR 3 MONTHS THEN OFF 1 WEEK
     Route: 062
     Dates: start: 20120101

REACTIONS (4)
  - OFF LABEL USE [None]
  - THERAPEUTIC RESPONSE UNEXPECTED [None]
  - DRUG PRESCRIBING ERROR [None]
  - PARANOIA [None]
